FAERS Safety Report 15317528 (Version 8)
Quarter: 2019Q3

REPORT INFORMATION
  Report Type: Spontaneous
  Country: DE (occurrence: DE)
  Receive Date: 20180824
  Receipt Date: 20190826
  Transmission Date: 20191004
  Serious: Yes (Hospitalization, Other)
  Sender: FDA-Public Use
  Company Number: DE-MYLANLABS-2018M1063184

PATIENT
  Age: 45 Year
  Sex: Female

DRUGS (15)
  1. ESTRADIOL. [Interacting]
     Active Substance: ESTRADIOL
     Dosage: 1 DOSAGE FORM, QD
     Route: 062
     Dates: start: 201503, end: 201503
  2. ESTRADIOL. [Interacting]
     Active Substance: ESTRADIOL
     Dosage: UNKNOWN, REDUCED TO 1/2 PUFF AND LESS IN 2018  UNK
     Route: 062
     Dates: start: 2018, end: 2018
  3. LINOLADIOL  NH                       /00709801/ [Interacting]
     Active Substance: ESTRADIOL\LINOLEIC ACID
     Indication: LICHEN SCLEROSUS
     Dosage: UNK
     Route: 061
     Dates: start: 201801, end: 201805
  4. ERGOCALCIFEROL. [Suspect]
     Active Substance: ERGOCALCIFEROL
     Indication: PRODUCT USED FOR UNKNOWN INDICATION
     Route: 065
  5. VITAMIN B COMPLEX [Concomitant]
     Active Substance: CYANOCOBALAMIN\DEXPANTHENOL\NIACINAMIDE\PYRIDOXINE HYDROCHLORIDE\RIBOFLAVIN 5^-PHOSPHATE SODIUM\THIAMINE HYDROCHLORIDE\VITAMIN B COMPLEX
     Indication: PRODUCT USED FOR UNKNOWN INDICATION
     Dosage: UNK
     Route: 065
  6. ESTRADIOL. [Interacting]
     Active Substance: ESTRADIOL
     Dosage: UNK, QD,LESS THAN HALF A PUFF DAILY AND LESS IN 2018
     Route: 062
     Dates: start: 2018
  7. LINOLADIOL HN [Interacting]
     Active Substance: ESTRADIOL\PREDNISOLONE
     Indication: LICHEN SCLEROSUS
     Dosage: UNK
     Route: 061
     Dates: start: 201801, end: 201805
  8. EUTHYROX [Concomitant]
     Active Substance: LEVOTHYROXINE SODIUM
     Indication: AUTOIMMUNE HYPOTHYROIDISM
     Dosage: 1 DF, QD (ON 3 DAYS 100 ?G, ON 4 DAYS 112 ?G)
     Route: 048
  9. GYNOKADIN DOSIERGEL                         /00045401/ [Interacting]
     Active Substance: ESTRADIOL
     Dosage: UNK,REDUCED TO 1/2 PUFF AND LESS IN 2018
     Route: 062
     Dates: start: 201503, end: 201803
  10. VITAMIN D NOS [Concomitant]
     Active Substance: VITAMIN D NOS
     Indication: PRODUCT USED FOR UNKNOWN INDICATION
     Dosage: UNK
  11. MIRTAZAPIN [Concomitant]
     Active Substance: MIRTAZAPINE
     Indication: SLEEP DISORDER
     Dosage: 15 MG, QD (DECLINING DOSE, TAPERED OFF)
     Route: 048
     Dates: start: 2013, end: 201805
  12. ESTRADIOL. [Suspect]
     Active Substance: ESTRADIOL
     Indication: HORMONE REPLACEMENT THERAPY
     Dosage: UNK
     Route: 062
  13. GYNOKADIN DOSIERGEL                         /00045401/ [Interacting]
     Active Substance: ESTRADIOL
     Indication: HORMONE REPLACEMENT THERAPY
     Dosage: REDUCED TO 1/2 PUFF AND LESS IN 2018
     Route: 062
     Dates: start: 201503
  14. PROGESTAN [Interacting]
     Active Substance: PROGESTERONE
     Indication: PREVENTION OF ENDOMETRIAL HYPERPLASIA
     Dosage: 1 DF, QD(100MG QD)
     Route: 067
     Dates: start: 201505, end: 201512
  15. DUPHASTON [Concomitant]
     Active Substance: DYDROGESTERONE
     Indication: PREVENTION OF ENDOMETRIAL HYPERPLASIA
     Dosage: 10 MG, UNK
     Route: 048
     Dates: start: 201601

REACTIONS (9)
  - Oestradiol increased [Recovering/Resolving]
  - Performance status decreased [Not Recovered/Not Resolved]
  - Fatigue [Recovered/Resolved]
  - Breast enlargement [Not Recovered/Not Resolved]
  - Menorrhagia [Recovered/Resolved]
  - Histamine intolerance [Not Recovered/Not Resolved]
  - Product use issue [Not Recovered/Not Resolved]
  - Lichen sclerosus [Recovered/Resolved]
  - Potentiating drug interaction [Recovered/Resolved]

NARRATIVE: CASE EVENT DATE: 2015
